FAERS Safety Report 22019697 (Version 2)
Quarter: 2023Q1

REPORT INFORMATION
  Report Type: Spontaneous
  Country: CH (occurrence: CH)
  Receive Date: 20230222
  Receipt Date: 20230223
  Transmission Date: 20230418
  Serious: Yes (Other)
  Sender: FDA-Public Use
  Company Number: None

PATIENT
  Age: 60 Year
  Sex: Male

DRUGS (12)
  1. XARELTO [Suspect]
     Active Substance: RIVAROXABAN
     Indication: Product used for unknown indication
     Dosage: 15 MG, UNK
     Route: 048
     Dates: start: 20230116, end: 20230117
  2. XARELTO [Suspect]
     Active Substance: RIVAROXABAN
     Dosage: 15 MG, UNK
     Route: 048
     Dates: start: 20230120, end: 20230126
  3. ENOXAPARIN SODIUM [Suspect]
     Active Substance: ENOXAPARIN SODIUM
     Dosage: UNK
     Dates: start: 20230117, end: 20230119
  4. DAFALGAN [Concomitant]
     Active Substance: ACETAMINOPHEN
     Dosage: 1000 MG, UNK
     Dates: start: 20230117, end: 20230120
  5. DAFALGAN [Concomitant]
     Active Substance: ACETAMINOPHEN
     Dosage: 500 MG, UNK
     Dates: start: 20230121, end: 20230127
  6. ARIXTRA [Concomitant]
     Active Substance: FONDAPARINUX SODIUM
     Dosage: 7.5 MG, UNK
     Dates: start: 20230126
  7. ATACAND [Concomitant]
     Active Substance: CANDESARTAN CILEXETIL
  8. ATENOLOL [Concomitant]
     Active Substance: ATENOLOL
  9. AMLODIPINE [Concomitant]
     Active Substance: AMLODIPINE BESYLATE
  10. TRAMADOL [Concomitant]
     Active Substance: TRAMADOL
     Dosage: 50 MG, UNK
     Dates: start: 20230116, end: 20230116
  11. TRAMADOL [Concomitant]
     Active Substance: TRAMADOL
     Dosage: 50 MG, UNK
     Dates: start: 20230118, end: 20230118
  12. TRAMADOL [Concomitant]
     Active Substance: TRAMADOL
     Dosage: 50 MG, UNK
     Dates: start: 20230120, end: 20230120

REACTIONS (1)
  - Mixed liver injury [Recovering/Resolving]

NARRATIVE: CASE EVENT DATE: 20230117
